FAERS Safety Report 18114349 (Version 4)
Quarter: 2021Q2

REPORT INFORMATION
  Report Type: Spontaneous
  Country: US (occurrence: US)
  Receive Date: 20200805
  Receipt Date: 20210624
  Transmission Date: 20210717
  Serious: Yes (Other)
  Sender: FDA-Public Use
  Company Number: US-GILEAD-2020-0488911

PATIENT
  Sex: Male
  Weight: 83.45 kg

DRUGS (18)
  1. VIREAD [Suspect]
     Active Substance: TENOFOVIR DISOPROXIL FUMARATE
     Indication: ACQUIRED IMMUNODEFICIENCY SYNDROME
     Dosage: UNK
     Route: 048
     Dates: start: 20000101, end: 201803
  2. ODEFSEY [Concomitant]
     Active Substance: EMTRICITABINE\RILPIVIRINE HYDROCHLORIDE\TENOFOVIR ALAFENAMIDE FUMARATE
  3. AMPICILLIN [Concomitant]
     Active Substance: AMPICILLIN
  4. VANCOMYCIN [Concomitant]
     Active Substance: VANCOMYCIN
  5. DELSTRIGO [Concomitant]
     Active Substance: DORAVIRINE\LAMIVUDINE\TENOFOVIR DISOPROXIL FUMARATE
  6. PIFELTRO [Concomitant]
     Active Substance: DORAVIRINE
  7. LEXIVA [Concomitant]
     Active Substance: FOSAMPRENAVIR CALCIUM
  8. TIVICAY [Concomitant]
     Active Substance: DOLUTEGRAVIR SODIUM
  9. WARFARIN [Concomitant]
     Active Substance: WARFARIN
  10. REYATAZ [Concomitant]
     Active Substance: ATAZANAVIR SULFATE
  11. SUSTIVA [Concomitant]
     Active Substance: EFAVIRENZ
  12. NORVIR [Concomitant]
     Active Substance: RITONAVIR
  13. TRIAMCINOLONE [Concomitant]
     Active Substance: TRIAMCINOLONE
  14. VIREAD [Suspect]
     Active Substance: TENOFOVIR DISOPROXIL FUMARATE
     Dosage: UNK
     Route: 048
     Dates: start: 20000101, end: 20191231
  15. TRUVADA [Suspect]
     Active Substance: EMTRICITABINE\TENOFOVIR DISOPROXIL FUMARATE
     Indication: PRODUCT USED FOR UNKNOWN INDICATION
     Dosage: UNK
     Route: 065
     Dates: start: 2000, end: 2019
  16. ACETAMINOPHEN. [Concomitant]
     Active Substance: ACETAMINOPHEN
  17. PENICILLIN [PENICILLIN NOS] [Concomitant]
     Active Substance: PENICILLIN
  18. EPZICOM [Concomitant]
     Active Substance: ABACAVIR SULFATE\LAMIVUDINE

REACTIONS (12)
  - Polyneuropathy [Not Recovered/Not Resolved]
  - Osteonecrosis [Unknown]
  - Bone density decreased [Unknown]
  - Bone loss [Unknown]
  - Tooth loss [Unknown]
  - Vitamin D deficiency [Not Recovered/Not Resolved]
  - Chronic kidney disease [Not Recovered/Not Resolved]
  - Renal failure [Unknown]
  - Renal cyst [Unknown]
  - Osteoarthritis [Unknown]
  - Emotional distress [Unknown]
  - Pain [Unknown]

NARRATIVE: CASE EVENT DATE: 2012
